FAERS Safety Report 12799238 (Version 1)
Quarter: 2016Q3

REPORT INFORMATION
  Report Type: Spontaneous
  Country: US (occurrence: US)
  Receive Date: 20160930
  Receipt Date: 20160930
  Transmission Date: 20161109
  Serious: Yes (Other)
  Sender: FDA-Public Use
  Company Number: US-009507513-1609USA011014

PATIENT
  Age: 23 Year
  Sex: Female
  Weight: 64.85 kg

DRUGS (1)
  1. NEXPLANON [Suspect]
     Active Substance: ETONOGESTREL
     Indication: CONTRACEPTION
     Dosage: 3 YEAR IMPLANT
     Route: 059
     Dates: start: 20140817

REACTIONS (9)
  - Post-traumatic stress disorder [Unknown]
  - Anxiety [Unknown]
  - Menstrual disorder [Unknown]
  - Vaginal discharge [Unknown]
  - Stress [Unknown]
  - Back pain [Unknown]
  - Depression [Unknown]
  - Amenorrhoea [Unknown]
  - Transient ischaemic attack [Unknown]

NARRATIVE: CASE EVENT DATE: 201408
